FAERS Safety Report 13825235 (Version 1)
Quarter: 2017Q3

REPORT INFORMATION
  Report Type: Spontaneous
  Country: RO (occurrence: RO)
  Receive Date: 20170802
  Receipt Date: 20170802
  Transmission Date: 20171127
  Serious: Yes (Death)
  Sender: FDA-Public Use
  Company Number: RO-LANNETT COMPANY, INC.-RO-2017LAN000947

PATIENT
  Age: 76 Year
  Sex: Female

DRUGS (2)
  1. HALOPERIDOL LACTATE. [Suspect]
     Active Substance: HALOPERIDOL LACTATE
     Indication: DELUSIONAL DISORDER, UNSPECIFIED TYPE
  2. HALOPERIDOL LACTATE. [Suspect]
     Active Substance: HALOPERIDOL LACTATE
     Indication: BRIEF PSYCHOTIC DISORDER WITHOUT MARKED STRESSORS
     Dosage: 10 MG, UNK
     Route: 065

REACTIONS (1)
  - Cerebrovascular disorder [Fatal]
